FAERS Safety Report 8778938 (Version 1)
Quarter: 2012Q4

REPORT INFORMATION
  Report Type: 
  Country: US (occurrence: US)
  Receive Date: 20120910
  Receipt Date: 20120910
  Transmission Date: 20130627
  Serious: Yes (Other)
  Sender: FDA-Public Use
  Company Number: US-ELI_LILLY_AND_COMPANY-US201209001207

PATIENT
  Sex: Female

DRUGS (3)
  1. CYMBALTA [Suspect]
     Indication: DEPRESSION
     Dosage: 30 mg, qd
  2. CYMBALTA [Suspect]
     Dosage: 60 mg, qd
  3. NEURONTIN [Concomitant]

REACTIONS (15)
  - Homicidal ideation [Unknown]
  - Suicidal ideation [Unknown]
  - Hypertension [Unknown]
  - Somnolence [Unknown]
  - Insomnia [Unknown]
  - Diarrhoea [Unknown]
  - Urinary incontinence [Unknown]
  - Hyperaesthesia [Unknown]
  - Hallucination [Unknown]
  - Abnormal dreams [Unknown]
  - Contusion [Unknown]
  - Somnambulism [Unknown]
  - Movement disorder [Unknown]
  - Decreased appetite [Unknown]
  - Feeling abnormal [Unknown]
